FAERS Safety Report 5835340-2 (Version None)
Quarter: 2008Q3

REPORT INFORMATION
  Report Type: 
  Country: None (occurrence: None)
  Receive Date: 20080804
  Receipt Date: 20080730
  Transmission Date: 20090109
  Serious: Yes (Other)
  Sender: FDA-Public Use
  Company Number: 1000000344

PATIENT
  Age: 20 Year
  Sex: Female

DRUGS (3)
  1. LEXAPRO [Suspect]
     Indication: ANXIETY
     Dosage: 10 MG (10 MG, 1 IN 1 D), ORAL
     Route: 048
     Dates: start: 20060101
  2. TRAZODONE (75 MILLIGRAM) [Concomitant]
  3. CONCERTA (18 MILLIGRAM) [Concomitant]

REACTIONS (2)
  - BREAST MASS [None]
  - CYST [None]
